FAERS Safety Report 10204229 (Version 7)
Quarter: 2014Q4

REPORT INFORMATION
  Report Type: Report from Study
  Country: US (occurrence: US)
  Receive Date: 20140529
  Receipt Date: 20141111
  Transmission Date: 20150528
  Serious: Yes (Other)
  Sender: FDA-Public Use
  Company Number: US-SA-2014SA068677

PATIENT
  Age: 65 Year
  Sex: Female

DRUGS (6)
  1. AVONEX [Concomitant]
     Active Substance: INTERFERON BETA-1A
  2. BENTYL [Concomitant]
     Active Substance: DICYCLOMINE HYDROCHLORIDE
  3. TUMS [Concomitant]
     Active Substance: CALCIUM CARBONATE
  4. NEXIUM [Concomitant]
     Active Substance: ESOMEPRAZOLE MAGNESIUM
  5. AUBAGIO [Suspect]
     Active Substance: TERIFLUNOMIDE
     Indication: RELAPSING-REMITTING MULTIPLE SCLEROSIS
     Route: 048
     Dates: start: 20140516
  6. MEDROL [Concomitant]
     Active Substance: METHYLPREDNISOLONE

REACTIONS (21)
  - Vision blurred [Unknown]
  - Rhinorrhoea [Unknown]
  - Somnolence [Unknown]
  - Migraine [Unknown]
  - Visual impairment [Unknown]
  - Abdominal discomfort [Unknown]
  - Hyperhidrosis [Not Recovered/Not Resolved]
  - Abdominal distension [Unknown]
  - Cognitive disorder [Unknown]
  - Constipation [Recovered/Resolved]
  - Cough [Not Recovered/Not Resolved]
  - Product packaging issue [Unknown]
  - Flatulence [Unknown]
  - Headache [Unknown]
  - Asthenia [Unknown]
  - Cataract [Not Recovered/Not Resolved]
  - Arthralgia [Not Recovered/Not Resolved]
  - Insomnia [Unknown]
  - Abdominal pain [Recovering/Resolving]
  - Pain in extremity [Unknown]
  - Pain [Recovering/Resolving]

NARRATIVE: CASE EVENT DATE: 20140516
